FAERS Safety Report 5701910-5 (Version None)
Quarter: 2008Q2

REPORT INFORMATION
  Report Type: 
  Country: None (occurrence: None)
  Receive Date: 20080411
  Receipt Date: 20080407
  Transmission Date: 20081010
  Serious: Yes (Hospitalization, Other)
  Sender: FDA-Public Use
  Company Number: FR-BRISTOL-MYERS SQUIBB COMPANY-14142160

PATIENT
  Age: 63 Year
  Sex: Male

DRUGS (6)
  1. ELISOR TABS 20 MG [Suspect]
     Dates: start: 20040101, end: 20071129
  2. KETEK [Suspect]
     Dosage: 4 TABS TAKEN FROM 26NOV2007. LATER ON 2 TABS WAS INITIATED.
     Dates: start: 20071126, end: 20071129
  3. TRIATEC [Suspect]
     Dates: start: 20040101
  4. KARDEGIC [Suspect]
     Dates: start: 20040101
  5. TENORMIN [Suspect]
     Dates: start: 20040101
  6. ALLOPURINOL [Suspect]
     Dates: start: 19940101

REACTIONS (5)
  - ARTHRALGIA [None]
  - CARPAL TUNNEL SYNDROME [None]
  - DERMATOSIS [None]
  - MYALGIA [None]
  - PARAESTHESIA [None]
